FAERS Safety Report 6778930-5 (Version None)
Quarter: 2010Q2

REPORT INFORMATION
  Report Type: 
  Country: None (occurrence: None)
  Receive Date: 20100618
  Receipt Date: 20100609
  Transmission Date: 20101027
  Serious: Yes (Other)
  Sender: FDA-Public Use
  Company Number: DE-TYCO HEALTHCARE/MALLINCKRODT-T201001410

PATIENT
  Age: 41 Year
  Sex: Female

DRUGS (1)
  1. SODIUM IODIDE I 131 [Suspect]
     Indication: RADIOACTIVE IODINE THERAPY
     Dosage: UNK

REACTIONS (3)
  - METASTASES TO LYMPH NODES [None]
  - THYROID NEOPLASM [None]
  - TREATMENT FAILURE [None]
